FAERS Safety Report 7785479-X (Version None)
Quarter: 2011Q3

REPORT INFORMATION
  Report Type: 
  Country: None (occurrence: None)
  Receive Date: 20110929
  Receipt Date: 20110914
  Transmission Date: 20111222
  Serious: Yes (Death, Hospitalization)
  Sender: FDA-Public Use
  Company Number: JP-JNJFOC-20110208178

PATIENT
  Sex: Female
  Weight: 53 kg

DRUGS (9)
  1. FAMOTIDINE [Concomitant]
     Indication: OVARIAN CANCER RECURRENT
     Route: 048
  2. GOSHA-JINKI-GAN [Concomitant]
     Indication: OVARIAN CANCER RECURRENT
     Route: 048
  3. LENDORMIN D [Concomitant]
     Indication: INSOMNIA
     Route: 048
  4. POTASSIUM CHLORIDE [Concomitant]
     Indication: INTESTINAL OBSTRUCTION
     Route: 041
     Dates: start: 20090724, end: 20090811
  5. MUCOSTA [Concomitant]
     Indication: OVARIAN CANCER RECURRENT
     Route: 048
  6. DOXORUBICIN HCL [Suspect]
     Indication: OVARIAN CANCER RECURRENT
     Dosage: CYCLE 1
     Route: 042
     Dates: start: 20090622, end: 20090622
  7. LORAZEPAM [Concomitant]
     Indication: OVARIAN CANCER RECURRENT
     Route: 048
  8. ACETAMINOPHEN [Concomitant]
     Indication: OVARIAN CANCER RECURRENT
     Route: 048
  9. KETOPROFEN [Concomitant]
     Indication: MYALGIA
     Route: 061
     Dates: start: 20090706

REACTIONS (2)
  - OVARIAN CANCER METASTATIC [None]
  - INTESTINAL OBSTRUCTION [None]
